FAERS Safety Report 5325319-1 (Version None)
Quarter: 2007Q2

REPORT INFORMATION
  Report Type: 
  Country: None (occurrence: None)
  Receive Date: 20070515
  Receipt Date: 20070511
  Transmission Date: 20071010
  Serious: Yes (Hospitalization)
  Sender: FDA-Public Use
  Company Number: DE-ASTRAZENECA-2007PK00978

PATIENT
  Age: 80 Year
  Sex: Female

DRUGS (4)
  1. ATACAND [Suspect]
     Route: 048
     Dates: start: 20070301, end: 20070510
  2. XIPAMID [Concomitant]
  3. TORSEMIDE [Concomitant]
  4. COTRIM [Concomitant]
     Indication: URINARY TRACT INFECTION
     Dates: start: 20070501

REACTIONS (1)
  - URINARY TRACT INFECTION [None]
